FAERS Safety Report 15994718 (Version 2)
Quarter: 2019Q1

REPORT INFORMATION
  Report Type: Spontaneous
  Country: AR (occurrence: AR)
  Receive Date: 20190222
  Receipt Date: 20190305
  Transmission Date: 20190418
  Serious: Yes (Life-Threatening)
  Sender: FDA-Public Use
  Company Number: PHHY2019AR040696

PATIENT
  Age: 24 Year
  Sex: Male

DRUGS (2)
  1. TASIGNA [Suspect]
     Active Substance: NILOTINIB
     Indication: CHRONIC MYELOID LEUKAEMIA
     Dosage: 400 MG, Q12H
     Route: 065
     Dates: start: 20150722, end: 20180719
  2. TASIGNA [Suspect]
     Active Substance: NILOTINIB
     Dosage: 300 MG, Q12H
     Route: 065
     Dates: end: 20190214

REACTIONS (4)
  - Intracranial pressure increased [Recovering/Resolving]
  - Headache [Recovering/Resolving]
  - Acute lymphocytic leukaemia [Unknown]
  - Visual impairment [Recovering/Resolving]

NARRATIVE: CASE EVENT DATE: 20190116
